FAERS Safety Report 5897466-7 (Version None)
Quarter: 2008Q3

REPORT INFORMATION
  Report Type: 
  Country: None (occurrence: None)
  Receive Date: 20080925
  Receipt Date: 20080922
  Transmission Date: 20090109
  Serious: Yes (Other)
  Sender: FDA-Public Use
  Company Number: CZ-BRISTOL-MYERS SQUIBB COMPANY-14333306

PATIENT
  Sex: Female

DRUGS (3)
  1. ABILIFY [Suspect]
     Indication: SCHIZOPHRENIA, PARANOID TYPE
     Dosage: 1 DOSAGE FORM = 1 AMPULE =7.5 MG/ML, CHANGED TO ORAL FORM 10 MG/DAY FROM 12-SEP-2008
     Route: 030
     Dates: start: 20080911
  2. ZYPREXA [Suspect]
     Dosage: ZYPREXA VELOTAB
  3. RIVOTRIL [Suspect]
     Dosage: TABLET FORM

REACTIONS (1)
  - VENOUS THROMBOSIS [None]
